FAERS Safety Report 10518997 (Version 1)
Quarter: 2014Q4

REPORT INFORMATION
  Report Type: Spontaneous
  Country: US (occurrence: None)
  Receive Date: 20141014
  Receipt Date: 20141014
  Transmission Date: 20150528
  Serious: Yes (Hospitalization)
  Sender: FDA-Public Use
  Company Number: None

PATIENT
  Age: 49 Year
  Sex: Female
  Weight: 85 kg

DRUGS (8)
  1. HYDROCODONE ACETAMINOPHEN [Concomitant]
     Active Substance: ACETAMINOPHEN\HYDROCODONE BITARTRATE
  2. ACETAMINOPHEN-BUTALBITAL-CAFFEINE [Concomitant]
  3. ESTRADIOL. [Concomitant]
     Active Substance: ESTRADIOL
  4. RIVAROXABAN [Suspect]
     Active Substance: RIVAROXABAN
     Indication: DEEP VEIN THROMBOSIS
     Dosage: 1 TABLET BID ORAL
     Route: 048
     Dates: start: 20141006, end: 20141011
  5. FLUCONAZOLE. [Concomitant]
     Active Substance: FLUCONAZOLE
  6. MEDROXYPROGESTERONE [Concomitant]
     Active Substance: MEDROXYPROGESTERONE
  7. DIAZEPAM. [Concomitant]
     Active Substance: DIAZEPAM
  8. ESCITALOPRAM [Concomitant]
     Active Substance: ESCITALOPRAM OXALATE

REACTIONS (7)
  - Nausea [None]
  - Vomiting [None]
  - Condition aggravated [None]
  - Dizziness [None]
  - Headache [None]
  - Abdominal pain [None]
  - Hepatic enzyme increased [None]

NARRATIVE: CASE EVENT DATE: 20141011
